FAERS Safety Report 6369949-7 (Version None)
Quarter: 2009Q3

REPORT INFORMATION
  Report Type: 
  Country: None (occurrence: None)
  Receive Date: 20090923
  Receipt Date: 20070522
  Transmission Date: 20100115
  Serious: Yes (Hospitalization, Other)
  Sender: FDA-Public Use
  Company Number: US-ASTRAZENECA-2006UW07997

PATIENT
  Age: 543 Month
  Sex: Female
  Weight: 104.3 kg

DRUGS (15)
  1. SEROQUEL [Suspect]
     Indication: BIPOLAR DISORDER
     Route: 048
     Dates: start: 20000101
  2. SEROQUEL [Suspect]
     Indication: DEPRESSION
     Route: 048
     Dates: start: 20000101
  3. SEROQUEL [Suspect]
     Indication: SCHIZOPHRENIA
     Route: 048
     Dates: start: 20000101
  4. SEROQUEL [Suspect]
     Dosage: 200-600 MG EVERY DAY
     Dates: start: 20030516
  5. SEROQUEL [Suspect]
     Dosage: 200-600 MG EVERY DAY
     Dates: start: 20030516
  6. SEROQUEL [Suspect]
     Dosage: 200-600 MG EVERY DAY
     Dates: start: 20030516
  7. RISPERDAL [Concomitant]
     Dates: start: 20020101, end: 20040101
  8. TRILAFON [Concomitant]
     Dates: start: 20020101, end: 20040101
  9. PAXIL [Concomitant]
  10. HYDROCHLOROTHIAZIDE [Concomitant]
     Indication: HYPERTENSION
     Dosage: 12.5-25 MG EVERYDAY
     Route: 048
     Dates: start: 20020320
  11. VIOXX [Concomitant]
     Indication: OSTEOARTHRITIS
     Dosage: 25-50 MG 1-2 TAB DAILY
     Route: 048
     Dates: start: 20020320
  12. NEURONTIN [Concomitant]
     Dosage: 600-800 MG
     Route: 048
     Dates: start: 20030102
  13. PRILOSEC [Concomitant]
     Route: 048
     Dates: start: 20030102
  14. CELEXA [Concomitant]
     Indication: MAJOR DEPRESSION
     Dates: start: 20030102
  15. LOVASTATIN [Concomitant]
     Dates: start: 20030909

REACTIONS (7)
  - DIABETES MELLITUS [None]
  - DIABETIC COMA [None]
  - DIABETIC KETOACIDOSIS [None]
  - GLUCOSE TOLERANCE IMPAIRED [None]
  - SUICIDAL BEHAVIOUR [None]
  - SUICIDAL IDEATION [None]
  - TYPE 2 DIABETES MELLITUS [None]
